FAERS Safety Report 23676300 (Version 1)
Quarter: 2024Q1

REPORT INFORMATION
  Report Type: Spontaneous
  Country: FR (occurrence: FR)
  Receive Date: 20240327
  Receipt Date: 20240327
  Transmission Date: 20240409
  Serious: Yes (Hospitalization, Other)
  Sender: FDA-Public Use
  Company Number: FR-AFSSAPS-AN2024000350

PATIENT
  Age: 4 Month
  Sex: Female
  Weight: 6.12 kg

DRUGS (6)
  1. LEVETIRACETAM [Interacting]
     Active Substance: LEVETIRACETAM
     Indication: Infantile spasms
     Dosage: 200 MILLIGRAM, ONCE A DAY
     Route: 048
     Dates: start: 20240122
  2. TOPIRAMATE [Interacting]
     Active Substance: TOPIRAMATE
     Indication: Infantile spasms
     Dosage: 30 MILLIGRAM, ONCE A DAY
     Route: 048
     Dates: start: 20231117
  3. RIVOTRIL [Interacting]
     Active Substance: CLONAZEPAM
     Indication: Neuralgia
     Dosage: 3 GTT DROPS ((DROP (1/12 MILLILITRE)), ONCE A DAY
     Route: 048
     Dates: start: 20240205, end: 20240207
  4. SABRIL [Interacting]
     Active Substance: VIGABATRIN
     Indication: Infantile spasms
     Dosage: 460 MILLIGRAM, ONCE A DAY
     Route: 048
     Dates: start: 20240206, end: 20240207
  5. SABRIL [Interacting]
     Active Substance: VIGABATRIN
     Dosage: 400 MILLIGRAM, ONCE A DAY
     Route: 048
     Dates: start: 20240116, end: 20240205
  6. PREDNISOLONE [Concomitant]
     Active Substance: PREDNISOLONE
     Indication: Product used for unknown indication
     Dosage: 30 MILLIGRAM, ONCE A DAY
     Route: 048
     Dates: start: 20240115

REACTIONS (3)
  - Altered state of consciousness [Recovered/Resolved]
  - Respiratory distress [Recovered/Resolved]
  - Drug interaction [Recovered/Resolved]

NARRATIVE: CASE EVENT DATE: 20240207
